FAERS Safety Report 6553962-0 (Version None)
Quarter: 2010Q1

REPORT INFORMATION
  Report Type: 
  Country: None (occurrence: None)
  Receive Date: 20100127
  Receipt Date: 20100116
  Transmission Date: 20100710
  Serious: Yes (Hospitalization)
  Sender: FDA-Public Use
  Company Number: US-JNJFOC-20100109272

PATIENT
  Sex: Male

DRUGS (2)
  1. MOTRIN IB [Suspect]
     Route: 063
  2. MOTRIN IB [Suspect]
     Indication: DRUG EXPOSURE VIA BREAST MILK
     Route: 063

REACTIONS (3)
  - BREAST FEEDING [None]
  - HOSPITALISATION [None]
  - PRODUCT QUALITY ISSUE [None]
